FAERS Safety Report 19460810 (Version 2)
Quarter: 2021Q3

REPORT INFORMATION
  Report Type: Report from Study
  Country: CA (occurrence: CA)
  Receive Date: 20210625
  Receipt Date: 20210927
  Transmission Date: 20211014
  Serious: Yes (Other)
  Sender: FDA-Public Use
  Company Number: CA-JNJFOC-20210644961

PATIENT
  Age: 40 Year
  Sex: Male

DRUGS (1)
  1. SIMPONI [Suspect]
     Active Substance: GOLIMUMAB
     Indication: ANKYLOSING SPONDYLITIS
     Dosage: STRENGTH = 100 MG
     Route: 058
     Dates: start: 20110314

REACTIONS (5)
  - Product dose omission issue [Unknown]
  - Drug level decreased [Unknown]
  - Drug ineffective [Unknown]
  - Subcutaneous abscess [Recovering/Resolving]
  - Ankylosing spondylitis [Recovering/Resolving]

NARRATIVE: CASE EVENT DATE: 202005
